APPROVED DRUG PRODUCT: MIDOL LIQUID GELS
Active Ingredient: IBUPROFEN
Strength: 200MG
Dosage Form/Route: CAPSULE;ORAL
Application: N021472 | Product #001
Applicant: BIONPHARMA INC
Approved: Oct 18, 2002 | RLD: Yes | RS: Yes | Type: OTC